FAERS Safety Report 4962177-9 (Version None)
Quarter: 2006Q2

REPORT INFORMATION
  Report Type: 
  Country: None (occurrence: None)
  Receive Date: 20060404
  Receipt Date: 20050830
  Transmission Date: 20061013
  Serious: Yes (Hospitalization)
  Sender: FDA-Public Use
  Company Number: US-MERCK-0508USA05017

PATIENT
  Age: 67 Year
  Sex: Female
  Weight: 105 kg

DRUGS (3)
  1. VIOXX [Suspect]
     Indication: ARTHRITIS
     Route: 048
  2. VIOXX [Suspect]
     Route: 048
     Dates: start: 20010101, end: 20040301
  3. TYLENOL (CAPLET) [Concomitant]
     Route: 048

REACTIONS (8)
  - ARTHRALGIA [None]
  - CEREBRAL INFARCTION [None]
  - HYPERLIPIDAEMIA [None]
  - HYPERPARATHYROIDISM [None]
  - HYPERTENSION [None]
  - PAIN IN EXTREMITY [None]
  - UPPER RESPIRATORY TRACT INFECTION [None]
  - WALLENBERG SYNDROME [None]
